FAERS Safety Report 8517813-7 (Version None)
Quarter: 2012Q3

REPORT INFORMATION
  Report Type: 
  Country: None (occurrence: None)
  Receive Date: 20120718
  Receipt Date: 20120712
  Transmission Date: 20120928
  Serious: Yes (Hospitalization, Other)
  Sender: FDA-Public Use
  Company Number: US-BAYER-2010-002700

PATIENT
  Age: 38 Year
  Sex: Female

DRUGS (9)
  1. FLEXERIL [Concomitant]
     Indication: BACK PAIN
     Dosage: 1 TO 2 AS NEEDED
     Route: 048
  2. PERCOCET [Concomitant]
     Indication: PAIN
     Dosage: 5-325 MG, 1 TO 2 EVERY 6 HOURS AS NEEDED
     Route: 048
  3. IBUPROFEN [Concomitant]
     Indication: PAIN
     Dosage: 800 MG, EVERY 6 HOURS AS NEEDED
     Route: 048
  4. HYDROCHLOROTHIAZIDE [Concomitant]
     Dosage: 25 MG, DAILY
     Route: 048
  5. ZEGERID [Concomitant]
     Dosage: 20-1100 MG DAILY
     Route: 048
  6. VALIUM [Concomitant]
     Dosage: 2 MG, TID AS NEEDED
     Route: 048
  7. DICLOFENAC [Concomitant]
     Indication: MUSCLE SPASMS
     Dosage: 75 MG, DAILY AS NEEDED
     Route: 048
  8. YASMIN [Suspect]
     Indication: PRODUCT USED FOR UNKNOWN INDICATION
     Dosage: UNK
     Dates: start: 20020101, end: 20060101
  9. PHENERGAN HCL [Concomitant]
     Dosage: 25 MG, EVERY 6 HOURS WITH PERCOCET
     Route: 048

REACTIONS (5)
  - GALLBLADDER INJURY [None]
  - DEEP VEIN THROMBOSIS [None]
  - PULMONARY EMBOLISM [None]
  - THROMBOSIS [None]
  - CHOLECYSTITIS [None]
